FAERS Safety Report 19712635 (Version 2)
Quarter: 2021Q3

REPORT INFORMATION
  Report Type: Other
  Country: US (occurrence: US)
  Receive Date: 20210816
  Receipt Date: 20210818
  Transmission Date: 20211014
  Serious: No
  Sender: FDA-Public Use
  Company Number: US-SUNOVION-2021SUN002948

PATIENT
  Sex: Female

DRUGS (1)
  1. LATUDA [Suspect]
     Active Substance: LURASIDONE HYDROCHLORIDE
     Indication: POST-TRAUMATIC STRESS DISORDER
     Dosage: 20 MG
     Route: 048

REACTIONS (1)
  - Off label use [Unknown]
